FAERS Safety Report 15476646 (Version 2)
Quarter: 2018Q4

REPORT INFORMATION
  Report Type: Report from Study
  Country: US (occurrence: US)
  Receive Date: 20181009
  Receipt Date: 20181010
  Transmission Date: 20190205
  Serious: Yes (Other)
  Sender: FDA-Public Use
  Company Number: US-ROCHE-2195529

PATIENT
  Sex: Female

DRUGS (3)
  1. XOLAIR [Suspect]
     Active Substance: OMALIZUMAB
     Indication: IDIOPATHIC URTICARIA
     Route: 058
     Dates: start: 20120808, end: 20160422
  2. NUCALA [Concomitant]
     Active Substance: MEPOLIZUMAB
     Route: 065
     Dates: start: 20160331
  3. XOLAIR [Suspect]
     Active Substance: OMALIZUMAB
     Indication: ASTHMA

REACTIONS (1)
  - Eosinophilic granulomatosis with polyangiitis [Not Recovered/Not Resolved]
